FAERS Safety Report 24060376 (Version 1)
Quarter: 2024Q3

REPORT INFORMATION
  Report Type: Spontaneous
  Country: US (occurrence: None)
  Receive Date: 20240705
  Receipt Date: 20240705
  Transmission Date: 20241017
  Serious: Yes (Disabling)
  Sender: Public
  Company Number: None

PATIENT
  Age: 71 Year
  Sex: Female
  Weight: 68.4 kg

DRUGS (15)
  1. PROLIA [Suspect]
     Active Substance: DENOSUMAB
     Indication: Osteoporosis
     Dosage: OTHER QUANTITY : 1 INJECTION(S);?OTHER FREQUENCY : EVERY 6 MONTHS;?OTHER ROUTE : SUBCUTANEOUS INJECT
     Route: 050
     Dates: start: 20200128, end: 20230323
  2. DICLOFENAC TOPICAL GEL [Concomitant]
  3. FAMOTIDINE [Concomitant]
     Active Substance: FAMOTIDINE
  4. TEMAZEPAM [Concomitant]
     Active Substance: TEMAZEPAM
  5. ESTRADIOL [Concomitant]
     Active Substance: ESTRADIOL
  6. HYDROCODONE [Concomitant]
     Active Substance: HYDROCODONE
  7. LIDOCAINE PATCH [Concomitant]
     Active Substance: LIDOCAINE
  8. EVENITY [Concomitant]
     Active Substance: ROMOSOZUMAB-AQQG
  9. MINERALS\VITAMINS [Concomitant]
     Active Substance: MINERALS\VITAMINS
  10. VITAMIN D3 [Concomitant]
     Active Substance: CHOLECALCIFEROL
  11. BIOTIN [Concomitant]
     Active Substance: BIOTIN
  12. CA WITH VITAMIN D [Concomitant]
  13. DOCUSATE SODIUM [Concomitant]
     Active Substance: DOCUSATE SODIUM
  14. TYLENOL ARTHRITIS PAIN [Concomitant]
     Active Substance: ACETAMINOPHEN
  15. IBUPROFEN [Concomitant]
     Active Substance: IBUPROFEN

REACTIONS (6)
  - Spinal fracture [None]
  - Body height decreased [None]
  - Pain [None]
  - Loss of personal independence in daily activities [None]
  - Product dose omission in error [None]
  - Feeling abnormal [None]

NARRATIVE: CASE EVENT DATE: 20240209
